FAERS Safety Report 9278087 (Version 2)
Quarter: 2014Q3

REPORT INFORMATION
  Report Type: Spontaneous
  Country: US (occurrence: None)
  Receive Date: 20121210
  Receipt Date: 20140923
  Transmission Date: 20150326
  Serious: Yes (Other)
  Sender: FDA-Public Use
  Company Number: 1211-721

PATIENT
  Age: 61 Year
  Sex: Male

DRUGS (3)
  1. ASPRIN (ACETYLSALICYLIC ACID) [Concomitant]
  2. MELOXICAM. [Concomitant]
     Active Substance: MELOXICAM
  3. EYLEA [Suspect]
     Active Substance: AFLIBERCEPT
     Indication: RETINAL VEIN OCCLUSION
     Route: 031
     Dates: start: 20121113, end: 20121113

REACTIONS (4)
  - Vision blurred [None]
  - Retinal artery occlusion [None]
  - Visual acuity reduced [None]
  - Retinal vein occlusion [None]

NARRATIVE: CASE EVENT DATE: 20121115
